FAERS Safety Report 5818880-1 (Version None)
Quarter: 2008Q3

REPORT INFORMATION
  Report Type: 
  Country: None (occurrence: None)
  Receive Date: 20080723
  Receipt Date: 20080721
  Transmission Date: 20090109
  Serious: Yes (Life-Threatening, Hospitalization)
  Sender: FDA-Public Use
  Company Number: FR-RB-002572-08

PATIENT
  Age: 18 Year
  Sex: Male

DRUGS (6)
  1. SUBUTEX [Suspect]
     Indication: DRUG DIVERSION
     Dosage: DOSING INFORMATION UNKNOWN
     Route: 042
  2. BUPRENORPHINE HCL [Suspect]
     Indication: DRUG DIVERSION
     Dosage: DOSING INFORMATION UNKNOWN
  3. ALCOHOL [Suspect]
     Indication: DRUG DIVERSION
     Dosage: UNKNOWN AMOUNT USED
  4. CLONAZEPAM [Suspect]
     Indication: DRUG DIVERSION
     Dosage: DOSING INFORMATION UNKNOWN
  5. CANNABIS [Suspect]
     Indication: DRUG DIVERSION
     Dosage: DOSING INFORMATION UNKNOWN
  6. ECTASY [Suspect]
     Indication: DRUG DIVERSION
     Dosage: DOSING INFORMATION UNKNOWN

REACTIONS (9)
  - COMA [None]
  - CYTOLYTIC HEPATITIS [None]
  - DRUG DIVERSION [None]
  - HEPATOCELLULAR INJURY [None]
  - HYPOXIA [None]
  - INCORRECT ROUTE OF DRUG ADMINISTRATION [None]
  - MENDELSON'S SYNDROME [None]
  - PNEUMOTHORAX [None]
  - SUBSTANCE ABUSE [None]
